FAERS Safety Report 4350421-0 (Version None)
Quarter: 2004Q2

REPORT INFORMATION
  Report Type: 
  Country: None (occurrence: None)
  Receive Date: 20040427
  Receipt Date: 20040413
  Transmission Date: 20050107
  Serious: Yes (Death)
  Sender: FDA-Public Use
  Company Number: 04P-163-0257679-00

PATIENT
  Age: 76 Year
  Sex: Female

DRUGS (13)
  1. HUMIRA [Suspect]
     Indication: RHEUMATOID ARTHRITIS
     Dosage: 40 MG, 1 IN 2 WK, SUBCUTANEOUS
     Route: 058
     Dates: start: 20040210
  2. DYAZIDE [Concomitant]
  3. DILTIAZEM HYDROCHLORIDE [Concomitant]
  4. QUINAPRIL HYDROCHLORIDE [Concomitant]
  5. PREDNISONE [Concomitant]
  6. METHOTREXATE SODIUM [Concomitant]
  7. LANSOPRAZOLE [Concomitant]
  8. PAROXETINE HCL [Concomitant]
  9. RALOXIFENE HCL [Concomitant]
  10. FOLIC ACID [Concomitant]
  11. ZOLPIDEM TARTRATE [Concomitant]
  12. TEMAZEPAM [Concomitant]
  13. CETIRIZINE HCL [Concomitant]

REACTIONS (1)
  - RESPIRATORY DISORDER [None]
